FAERS Safety Report 8307389-1 (Version None)
Quarter: 2012Q2

REPORT INFORMATION
  Report Type: 
  Country: None (occurrence: None)
  Receive Date: 20120424
  Receipt Date: 20120416
  Transmission Date: 20120825
  Serious: Yes (Hospitalization)
  Sender: FDA-Public Use
  Company Number: FR-ABBOTT-12P-056-0926412-00

PATIENT
  Age: 51 Year
  Sex: Female

DRUGS (9)
  1. NEXIUM [Concomitant]
     Indication: PRODUCT USED FOR UNKNOWN INDICATION
  2. ISENTRESS [Concomitant]
     Indication: HIV INFECTION
  3. PRAVASTATIN [Concomitant]
     Indication: PRODUCT USED FOR UNKNOWN INDICATION
     Dosage: SODIC
  4. NORVIR [Suspect]
     Indication: HIV TEST POSITIVE
     Route: 048
     Dates: start: 20110114
  5. ALDACTONE [Concomitant]
     Indication: PRODUCT USED FOR UNKNOWN INDICATION
  6. RAMIPRIL [Concomitant]
     Indication: PRODUCT USED FOR UNKNOWN INDICATION
  7. NASONEX [Interacting]
     Indication: SINUSITIS
     Dates: start: 20120206, end: 20120327
  8. BISOPROLOL FUMARATE [Concomitant]
     Indication: PRODUCT USED FOR UNKNOWN INDICATION
  9. PREZISTA [Concomitant]
     Indication: HIV INFECTION

REACTIONS (4)
  - CENTRAL OBESITY [None]
  - DRUG INTERACTION [None]
  - CUSHINGOID [None]
  - CUSHING'S SYNDROME [None]
